FAERS Safety Report 21873637 (Version 1)
Quarter: 2023Q1

REPORT INFORMATION
  Report Type: Spontaneous
  Country: US (occurrence: None)
  Receive Date: 20230116
  Receipt Date: 20230116
  Transmission Date: 20230417
  Serious: Yes (Other)
  Sender: FDA-Public Use
  Company Number: None

PATIENT
  Age: 43 Year
  Sex: Female
  Weight: 76.5 kg

DRUGS (1)
  1. MIDODRINE [Suspect]
     Active Substance: MIDODRINE
     Indication: Hypotension
     Dosage: OTHER QUANTITY : 100 TABLET(S);?FREQUENCY : EVERY 4 HOURS;?
     Route: 048
     Dates: start: 20220919, end: 20230102

REACTIONS (5)
  - Product substitution issue [None]
  - Blood pressure decreased [None]
  - Fatigue [None]
  - Dizziness [None]
  - Therapeutic response decreased [None]

NARRATIVE: CASE EVENT DATE: 20220929
